FAERS Safety Report 15583321 (Version 1)
Quarter: 2018Q4

REPORT INFORMATION
  Report Type: Spontaneous
  Country: US (occurrence: US)
  Receive Date: 20181103
  Receipt Date: 20181103
  Transmission Date: 20190205
  Serious: No
  Sender: FDA-Public Use
  Company Number: US-TEVA-2018-US-970035

PATIENT
  Age: 74 Year
  Sex: Male

DRUGS (1)
  1. ACITRCAP [Suspect]
     Active Substance: ACITRETIN
     Indication: PSORIASIS
     Route: 065
     Dates: start: 20181011

REACTIONS (1)
  - Pain [Unknown]

NARRATIVE: CASE EVENT DATE: 20181011
